FAERS Safety Report 7953018-6 (Version None)
Quarter: 2011Q4

REPORT INFORMATION
  Report Type: 
  Country: None (occurrence: None)
  Receive Date: 20111201
  Receipt Date: 20111129
  Transmission Date: 20120403
  Serious: Yes (Other)
  Sender: FDA-Public Use
  Company Number: FR-PFIZER INC-2011259054

PATIENT
  Age: 44 Year
  Sex: Female
  Weight: 50 kg

DRUGS (4)
  1. LAMALINE [Concomitant]
     Indication: PAIN
     Dosage: UNK
     Route: 054
     Dates: start: 20101109
  2. IBUPROFEN [Concomitant]
     Indication: PAIN
     Dosage: 200 MG, 1X/DAY
     Route: 048
     Dates: start: 20101109
  3. RELPAX [Suspect]
     Indication: MIGRAINE
     Dosage: 40MG 10 TABLETS PER MONTH
     Dates: start: 20110406
  4. ESCITALOPRAM [Concomitant]
     Indication: DEPRESSION
     Dosage: 10 MG, 1X/DAY
     Route: 048
     Dates: start: 20100610

REACTIONS (1)
  - RAYNAUD'S PHENOMENON [None]
